FAERS Safety Report 15949470 (Version 1)
Quarter: 2019Q1

REPORT INFORMATION
  Report Type: Spontaneous
  Country: US (occurrence: US)
  Receive Date: 20190211
  Receipt Date: 20190211
  Transmission Date: 20190417
  Serious: No
  Sender: FDA-Public Use
  Company Number: US-PERRIGO-18US007460

PATIENT
  Age: 40 Year
  Sex: Female
  Weight: 54.42 kg

DRUGS (2)
  1. IBUPROFEN. [Suspect]
     Active Substance: IBUPROFEN
     Indication: PAIN
     Dosage: 300 MG, SINGLE
     Route: 048
     Dates: start: 20180717, end: 20180717
  2. IBUPROFEN. [Suspect]
     Active Substance: IBUPROFEN
     Dosage: 300 MG, TWICE IN 8 HOURS
     Route: 048
     Dates: start: 20180717, end: 20180717

REACTIONS (1)
  - Product administered to patient of inappropriate age [Recovered/Resolved]

NARRATIVE: CASE EVENT DATE: 20180717
